FAERS Safety Report 24090642 (Version 1)
Quarter: 2024Q3

REPORT INFORMATION
  Report Type: Spontaneous
  Country: GB (occurrence: GB)
  Receive Date: 20240715
  Receipt Date: 20240715
  Transmission Date: 20241016
  Serious: Yes (Other)
  Sender: TEVA
  Company Number: GB-MHRA-EMIS-3152-32615d44-d1eb-4047-9f0d-55cb2fa975e6

PATIENT
  Age: 83 Year
  Sex: Female
  Weight: 65 kg

DRUGS (7)
  1. DOXYCYCLINE [Suspect]
     Active Substance: DOXYCYCLINE\DOXYCYCLINE HYCLATE
     Indication: Cough
     Dosage: STOP PRAVASTATIN
     Route: 048
     Dates: start: 20240606
  2. EUMOVATE [Concomitant]
     Active Substance: CLOBETASONE BUTYRATE
     Indication: Inflammation
     Dosage: APPLY THINLY
     Route: 061
     Dates: start: 20240605
  3. EUMOVATE [Concomitant]
     Active Substance: CLOBETASONE BUTYRATE
     Indication: Inflammation
     Dosage: APPLY THINLY WHEN AREA AFFECTED IS INFLAMMED
     Route: 065
     Dates: start: 20240501, end: 20240530
  4. FLUCLOXACILLIN [Concomitant]
     Active Substance: FLUCLOXACILLIN
     Route: 048
     Dates: start: 20240626
  5. Spikevax XBB.1.5 COVID-19 mRNA Vaccine 0.1mg/1ml vials [Concomitant]
     Route: 030
     Dates: start: 20240502
  6. Atrauman [Concomitant]
     Dosage: AS DIRECTED, ATRAUMAN DRESSING 10CM X 20CM (PAUL HARTMANN LTD)
     Dates: start: 20240626
  7. FUCIDIN [Concomitant]
     Active Substance: FUSIDATE SODIUM
     Route: 061
     Dates: start: 20240603

REACTIONS (1)
  - Polymorphic light eruption [Recovered/Resolved]

NARRATIVE: CASE EVENT DATE: 20240626
